FAERS Safety Report 14687861 (Version 4)
Quarter: 2018Q2

REPORT INFORMATION
  Report Type: Report from Study
  Country: TR (occurrence: TR)
  Receive Date: 20180328
  Receipt Date: 20180425
  Transmission Date: 20180711
  Serious: Yes (Life-Threatening, Hospitalization)
  Sender: FDA-Public Use
  Company Number: TR-ROCHE-2096931

PATIENT
  Age: 54 Year
  Sex: Male
  Weight: 68.9 kg

DRUGS (4)
  1. TIOFIX [Concomitant]
     Indication: RESPIRATORY DISTRESS
  2. AVELOX [Concomitant]
     Active Substance: MOXIFLOXACIN HYDROCHLORIDE
     Indication: LOWER RESPIRATORY TRACT INFECTION
     Route: 065
     Dates: start: 20180314
  3. ATEZOLIZUMAB. [Suspect]
     Active Substance: ATEZOLIZUMAB
     Indication: NON-SMALL CELL LUNG CANCER STAGE IV
     Dosage: DATE OF MOST RECENT DOSE PRIOR TO EVENT ONSET ON 23/FEB/2018 AT 12:25
     Route: 042
     Dates: start: 20180202
  4. TIOFIX [Concomitant]
     Indication: DYSPNOEA
     Route: 065
     Dates: start: 20180223

REACTIONS (2)
  - Atelectasis [Recovering/Resolving]
  - Lower respiratory tract infection [Recovering/Resolving]

NARRATIVE: CASE EVENT DATE: 20180319
